FAERS Safety Report 4922942-0 (Version None)
Quarter: 2006Q1

REPORT INFORMATION
  Report Type: 
  Country: None (occurrence: None)
  Receive Date: 20060224
  Receipt Date: 20050824
  Transmission Date: 20060701
  Serious: Yes (Hospitalization, Disabling)
  Sender: FDA-Public Use
  Company Number: US-MERCK-0508USA04341

PATIENT
  Age: 44 Year
  Sex: Female
  Weight: 89 kg

DRUGS (2)
  1. VIOXX [Suspect]
     Indication: NECK PAIN
     Route: 048
     Dates: start: 20010823, end: 20040901
  2. VIOXX [Suspect]
     Indication: BACK PAIN
     Route: 048
     Dates: start: 20010823, end: 20040901

REACTIONS (30)
  - ABDOMINAL PAIN [None]
  - ANXIETY [None]
  - ANXIETY DISORDER [None]
  - ARTHRALGIA [None]
  - CARDIAC ANEURYSM [None]
  - CHEST PAIN [None]
  - CHRONIC OBSTRUCTIVE PULMONARY DISEASE [None]
  - CORONARY ARTERY DISEASE [None]
  - DEPRESSION [None]
  - DYSPNOEA [None]
  - DYSURIA [None]
  - EMOTIONAL DISORDER [None]
  - GASTROENTERITIS [None]
  - HEADACHE [None]
  - HIATUS HERNIA [None]
  - HYPERCHOLESTEROLAEMIA [None]
  - HYPERTENSION [None]
  - HYPOAESTHESIA [None]
  - MYOCARDIAL INFARCTION [None]
  - NEPHROLITHIASIS [None]
  - OVARIAN MASS [None]
  - OVERDOSE [None]
  - PAIN [None]
  - PAIN IN EXTREMITY [None]
  - PELVIC PAIN [None]
  - PLEURITIC PAIN [None]
  - POST-TRAUMATIC STRESS DISORDER [None]
  - PSYCHOTIC DISORDER [None]
  - SCHIZOAFFECTIVE DISORDER [None]
  - VOMITING [None]
